FAERS Safety Report 25206746 (Version 4)
Quarter: 2025Q3

REPORT INFORMATION
  Report Type: Report from Study
  Country: KR (occurrence: KR)
  Receive Date: 20250417
  Receipt Date: 20250709
  Transmission Date: 20251021
  Serious: Yes (Hospitalization, Other)
  Sender: ASTELLAS
  Company Number: KR-ASTELLAS-2025-AER-018224

PATIENT
  Age: 61 Year
  Sex: Male
  Weight: 62 kg

DRUGS (9)
  1. GILTERITINIB [Suspect]
     Active Substance: GILTERITINIB
     Indication: Acute myeloid leukaemia recurrent
     Route: 048
     Dates: start: 20240701, end: 20241103
  2. GILTERITINIB [Suspect]
     Active Substance: GILTERITINIB
     Indication: FLT3 gene mutation
  3. GILTERITINIB [Suspect]
     Active Substance: GILTERITINIB
     Indication: Acute myeloid leukaemia refractory
  4. ACYCLOVIR [Concomitant]
     Active Substance: ACYCLOVIR
     Indication: Prophylaxis
     Route: 048
     Dates: start: 20240627, end: 20241103
  5. DIFLUCAN [Concomitant]
     Active Substance: FLUCONAZOLE
     Indication: Prophylaxis
     Route: 048
     Dates: start: 20240708, end: 20241103
  6. PIPERACILLIN SODIUM\TAZOBACTAM SODIUM [Concomitant]
     Active Substance: PIPERACILLIN SODIUM\TAZOBACTAM SODIUM
     Indication: Prophylaxis
     Route: 042
     Dates: start: 20240628, end: 20240725
  7. VANCOMYCIN HYDROCHLORIDE [Concomitant]
     Active Substance: VANCOMYCIN HYDROCHLORIDE
     Indication: Prophylaxis
     Route: 042
     Dates: start: 20240708, end: 20240710
  8. CITOPCIN [CIPROFLOXACIN] [Concomitant]
     Indication: Prophylaxis
     Route: 048
     Dates: start: 20240923, end: 20241103
  9. CITOPCIN [CIPROFLOXACIN] [Concomitant]
     Route: 048
     Dates: start: 20240726, end: 20240906

REACTIONS (4)
  - Complication associated with device [Recovered/Resolved]
  - Neutropenic colitis [Recovering/Resolving]
  - Graft versus host disease in liver [Recovering/Resolving]
  - Decreased appetite [Recovered/Resolved]

NARRATIVE: CASE EVENT DATE: 20240828
